FAERS Safety Report 7017327-X (Version None)
Quarter: 2010Q3

REPORT INFORMATION
  Report Type: 
  Country: None (occurrence: None)
  Receive Date: 20100928
  Receipt Date: 20100916
  Transmission Date: 20110219
  Serious: No
  Sender: FDA-Public Use
  Company Number: US-BIOGENIDEC-2010BI032787

PATIENT
  Age: 48 Year
  Sex: Female

DRUGS (4)
  1. AVONEX [Suspect]
     Indication: MULTIPLE SCLEROSIS
     Route: 030
     Dates: start: 20100410
  2. INSULIN [Concomitant]
     Indication: DIABETES MELLITUS
  3. BYETTA [Concomitant]
     Indication: DIABETES MELLITUS
  4. LANTUS [Concomitant]
     Indication: DIABETES MELLITUS

REACTIONS (2)
  - BLOOD GLUCOSE DECREASED [None]
  - INJECTION SITE DISCOLOURATION [None]
